FAERS Safety Report 9853794 (Version 1)
Quarter: 2014Q1

REPORT INFORMATION
  Report Type: Spontaneous
  Country: US (occurrence: US)
  Receive Date: 20140129
  Receipt Date: 20140129
  Transmission Date: 20141002
  Serious: No
  Sender: FDA-Public Use
  Company Number: US-GLAXOSMITHKLINE-A1040945A

PATIENT
  Sex: Female
  Weight: 78.2 kg

DRUGS (3)
  1. WELLBUTRIN XL [Suspect]
     Indication: DEPRESSION
     Dosage: 150MG PER DAY
     Route: 048
  2. UNKNOWN MEDICATION [Suspect]
     Indication: DEPRESSION
     Dosage: 150MG PER DAY
     Route: 048
     Dates: start: 2011
  3. THYROID MEDICATION [Suspect]
     Indication: ALOPECIA

REACTIONS (3)
  - Alopecia [Unknown]
  - Weight increased [Unknown]
  - Hyperhidrosis [Unknown]
